FAERS Safety Report 6048842-3 (Version None)
Quarter: 2009Q1

REPORT INFORMATION
  Report Type: 
  Country: None (occurrence: None)
  Receive Date: 20090123
  Receipt Date: 20090116
  Transmission Date: 20090719
  Serious: Yes (Other)
  Sender: FDA-Public Use
  Company Number: US-WYE-H07742509

PATIENT
  Age: 14 Year
  Sex: Female

DRUGS (2)
  1. ROBITUSSIN NIGHT TIME COUGH AND COLD [Suspect]
     Indication: COUGH
     Dosage: UNKNOWN DOSE ONE TIME
     Route: 048
     Dates: start: 20090116, end: 20090116
  2. ROBITUSSIN NIGHT TIME COUGH AND COLD [Suspect]
     Indication: NASOPHARYNGITIS

REACTIONS (1)
  - HYPERSENSITIVITY [None]
